FAERS Safety Report 4968658-6 (Version None)
Quarter: 2006Q2

REPORT INFORMATION
  Report Type: 
  Country: None (occurrence: None)
  Receive Date: 20060405
  Receipt Date: 20060317
  Transmission Date: 20061013
  Serious: Yes (Life-Threatening)
  Sender: FDA-Public Use
  Company Number: 2006038115

PATIENT
  Age: 66 Year
  Sex: Male
  Weight: 60 kg

DRUGS (2)
  1. LYRICA [Suspect]
     Indication: NEURALGIA
     Dosage: 75 MG (1 D), ORAL
     Route: 048
     Dates: start: 20060227
  2. MORPHINE [Suspect]
     Indication: NEURALGIA
     Dosage: 80 MG (1 D), INTRATHECAL
     Route: 037
     Dates: start: 20060227, end: 20060227

REACTIONS (3)
  - DRUG INTERACTION [None]
  - DRUG TOXICITY [None]
  - RESPIRATORY DEPRESSION [None]
